FAERS Safety Report 5798012-9 (Version None)
Quarter: 2008Q3

REPORT INFORMATION
  Report Type: 
  Country: None (occurrence: None)
  Receive Date: 20080702
  Receipt Date: 20070605
  Transmission Date: 20090109
  Serious: Yes (Hospitalization)
  Sender: FDA-Public Use
  Company Number: B0474425A

PATIENT
  Age: 42 Year
  Sex: Male

DRUGS (6)
  1. HALFAN [Suspect]
     Indication: MALARIA PROPHYLAXIS
     Dosage: 6TABS CUMULATIVE DOSE
     Route: 048
     Dates: end: 20070411
  2. ASPEGIC 325 [Concomitant]
  3. SECTRAL [Concomitant]
  4. RAMIPRIL [Concomitant]
  5. TAREG [Concomitant]
  6. EZETROL [Concomitant]

REACTIONS (4)
  - LEFT VENTRICULAR HYPERTROPHY [None]
  - SYNCOPE [None]
  - TREATMENT NONCOMPLIANCE [None]
  - VENTRICULAR HYPOKINESIA [None]
